FAERS Safety Report 18718013 (Version 3)
Quarter: 2021Q2

REPORT INFORMATION
  Report Type: Spontaneous
  Country: US (occurrence: US)
  Receive Date: 20210108
  Receipt Date: 20210413
  Transmission Date: 20210717
  Serious: Yes (Hospitalization, Other)
  Sender: FDA-Public Use
  Company Number: US-ABBVIE-21K-163-3719663-00

PATIENT
  Age: 71 Year
  Sex: Female
  Weight: 55.39 kg

DRUGS (4)
  1. PFIZER?BIONTECH COVID?19 VACCINE [Suspect]
     Active Substance: TOZINAMERAN
     Indication: COVID-19 IMMUNISATION
     Dosage: PFIZER
     Route: 030
     Dates: start: 20210220, end: 20210220
  2. SYNTHROID [Suspect]
     Active Substance: LEVOTHYROXINE SODIUM
     Indication: HYPOTHYROIDISM
     Route: 048
     Dates: start: 200508
  3. PFIZER?BIONTECH COVID?19 VACCINE [Suspect]
     Active Substance: TOZINAMERAN
     Dosage: PFIZER
     Route: 030
     Dates: start: 20210312, end: 20210312
  4. VITAMIN D3 [Concomitant]
     Active Substance: CHOLECALCIFEROL
     Indication: PRODUCT USED FOR UNKNOWN INDICATION

REACTIONS (25)
  - Rash pruritic [Not Recovered/Not Resolved]
  - Pyrexia [Not Recovered/Not Resolved]
  - Urinary tract infection [Not Recovered/Not Resolved]
  - Insomnia [Not Recovered/Not Resolved]
  - Alopecia [Not Recovered/Not Resolved]
  - Heart rate increased [Recovered/Resolved]
  - Drug ineffective [Unknown]
  - Gastrointestinal disorder [Not Recovered/Not Resolved]
  - Chills [Not Recovered/Not Resolved]
  - Bladder disorder [Not Recovered/Not Resolved]
  - Weight decreased [Not Recovered/Not Resolved]
  - Fatigue [Not Recovered/Not Resolved]
  - Swelling face [Recovering/Resolving]
  - Eye contusion [Recovering/Resolving]
  - Night sweats [Not Recovered/Not Resolved]
  - Tachycardia [Not Recovered/Not Resolved]
  - Syncope [Recovering/Resolving]
  - Endometriosis [Recovered/Resolved]
  - Iritis [Not Recovered/Not Resolved]
  - Pain in extremity [Recovered/Resolved]
  - Fall [Not Recovered/Not Resolved]
  - Illness [Unknown]
  - Contusion [Not Recovered/Not Resolved]
  - Thyroid hormones decreased [Unknown]
  - Muscular weakness [Not Recovered/Not Resolved]

NARRATIVE: CASE EVENT DATE: 2020
